FAERS Safety Report 5055532-2 (Version None)
Quarter: 2006Q3

REPORT INFORMATION
  Report Type: 
  Country: None (occurrence: None)
  Receive Date: 20060714
  Receipt Date: 20060705
  Transmission Date: 20061208
  Serious: Yes (Death, Hospitalization, Other)
  Sender: FDA-Public Use
  Company Number: 163-20785-06020154

PATIENT
  Age: 81 Year
  Sex: Female

DRUGS (7)
  1. THALOMID [Suspect]
     Indication: MYELODYSPLASTIC SYNDROME
     Dosage: 100 MG, AT BEDTIME, ORAL
     Route: 048
     Dates: start: 20041022, end: 20051201
  2. CELEBREX [Suspect]
     Dates: start: 20060101
  3. MULTIVITAMIN [Concomitant]
  4. VITAMIN B6 [Concomitant]
  5. CALCIUM (CALCIUM) [Concomitant]
  6. DARVOCET-N 100 [Concomitant]
  7. LEVAQUIN [Concomitant]

REACTIONS (13)
  - ANAEMIA [None]
  - BLOOD PRESSURE INCREASED [None]
  - BLOOD URINE PRESENT [None]
  - CATHETER RELATED COMPLICATION [None]
  - CONTUSION [None]
  - DISEASE PROGRESSION [None]
  - HAEMATURIA [None]
  - MYELODYSPLASTIC SYNDROME [None]
  - NEUROPATHY PERIPHERAL [None]
  - PLATELET COUNT DECREASED [None]
  - PLATELET FUNCTION TEST ABNORMAL [None]
  - POST PROCEDURAL HAEMORRHAGE [None]
  - URINARY BLADDER HAEMORRHAGE [None]
